FAERS Safety Report 19922087 (Version 1)
Quarter: 2021Q4

REPORT INFORMATION
  Report Type: Spontaneous
  Country: US (occurrence: US)
  Receive Date: 20211006
  Receipt Date: 20211006
  Transmission Date: 20220303
  Serious: Yes (Hospitalization, Other)
  Sender: FDA-Public Use
  Company Number: US-NOVARTISPH-NVSC2021US221622

PATIENT
  Age: 70 Year
  Sex: Male

DRUGS (2)
  1. RANITIDINE [Suspect]
     Active Substance: RANITIDINE
     Indication: Gastrooesophageal reflux disease
     Dosage: 150 MG, QD
     Route: 048
     Dates: start: 201001, end: 201805
  2. RANITIDINE [Suspect]
     Active Substance: RANITIDINE
     Indication: Gastrooesophageal reflux disease
     Dosage: 150 MG, QD
     Route: 048
     Dates: start: 201001, end: 201805

REACTIONS (6)
  - Oesophageal carcinoma [Unknown]
  - Hepatic cancer stage IV [Unknown]
  - Malignant splenic neoplasm [Unknown]
  - Metastasis [Unknown]
  - Neuropathy peripheral [Unknown]
  - Incorrect dose administered [Unknown]

NARRATIVE: CASE EVENT DATE: 20180601
